FAERS Safety Report 16795557 (Version 2)
Quarter: 2019Q4

REPORT INFORMATION
  Report Type: Report from Study
  Country: US (occurrence: US)
  Receive Date: 20190911
  Receipt Date: 20191011
  Transmission Date: 20200122
  Serious: Yes (Death, Hospitalization, Other)
  Sender: FDA-Public Use
  Company Number: US-GILEAD-2019-0427599

PATIENT
  Age: 14 Year
  Sex: Female
  Weight: 20.8 kg

DRUGS (3)
  1. AMBRISENTAN [Suspect]
     Active Substance: AMBRISENTAN
     Indication: PULMONARY HYPERTENSION
     Dosage: 5 MG, QD
     Route: 048
     Dates: start: 20180513, end: 20190827
  2. TADALAFIL. [Concomitant]
     Active Substance: TADALAFIL
     Dosage: 40 MG, QD
     Route: 048
     Dates: start: 20180830, end: 20190827
  3. DIGOXIN. [Concomitant]
     Active Substance: DIGOXIN
     Dosage: 125 UG
     Route: 048

REACTIONS (3)
  - Gastrointestinal haemorrhage [Not Recovered/Not Resolved]
  - Acute respiratory failure [Fatal]
  - Pulmonary arterial hypertension [Fatal]
